FAERS Safety Report 5381292-1 (Version None)
Quarter: 2007Q3

REPORT INFORMATION
  Report Type: 
  Country: None (occurrence: None)
  Receive Date: 20070702
  Receipt Date: 20060522
  Transmission Date: 20080115
  Serious: Yes (Other)
  Sender: FDA-Public Use
  Company Number: SUS1-2006-00549

PATIENT
  Age: 45 Year

DRUGS (2)
  1. PENTASA [Suspect]
     Indication: PROCTITIS ULCERATIVE
     Dosage: 4 G DAILY, ORAL
     Route: 048
     Dates: start: 20060316, end: 20060403
  2. IMIPRAMINE [Concomitant]

REACTIONS (3)
  - ARTHRALGIA [None]
  - HYPERHIDROSIS [None]
  - PARAESTHESIA [None]
